FAERS Safety Report 4646279-2 (Version None)
Quarter: 2005Q2

REPORT INFORMATION
  Report Type: 
  Country: None (occurrence: None)
  Receive Date: 20050427
  Receipt Date: 20050422
  Transmission Date: 20051028
  Serious: Yes (Hospitalization)
  Sender: FDA-Public Use
  Company Number: US-MERCK-0504USA04130

PATIENT
  Age: 92 Year
  Sex: Female

DRUGS (9)
  1. FOSAMAX [Suspect]
     Indication: OSTEOPOROSIS
     Route: 048
     Dates: start: 19970101, end: 20050401
  2. ARICEPT [Concomitant]
     Route: 065
  3. LASIX [Concomitant]
     Route: 065
  4. POTASSIUM (UNSPECIFIED) [Concomitant]
     Route: 065
  5. PROZAC [Concomitant]
     Route: 065
  6. HYDROXYZINE PAMOATE [Concomitant]
     Route: 065
  7. PRILOSEC [Concomitant]
     Route: 065
  8. LEVOTHROID [Concomitant]
     Route: 065
  9. HYDRALAZINE [Concomitant]
     Route: 065

REACTIONS (2)
  - OESOPHAGEAL HAEMORRHAGE [None]
  - RASH [None]
